FAERS Safety Report 5695665-0 (Version None)
Quarter: 2008Q2

REPORT INFORMATION
  Report Type: 
  Country: None (occurrence: None)
  Receive Date: 20080407
  Receipt Date: 20080306
  Transmission Date: 20081010
  Serious: No
  Sender: FDA-Public Use
  Company Number: US-BAYER-200816325NA

PATIENT
  Age: 30 Year
  Sex: Female

DRUGS (2)
  1. YAZ [Suspect]
     Indication: MOOD ALTERED
     Route: 048
     Dates: start: 20080101
  2. HORMONAL PILLS NOS [Concomitant]
     Indication: UTERINE HAEMORRHAGE

REACTIONS (1)
  - MENORRHAGIA [None]
